FAERS Safety Report 6408812 (Version 20)
Quarter: 2020Q3

REPORT INFORMATION
  Report Type: Report from Study
  Country: US (occurrence: US)
  Receive Date: 20070907
  Receipt Date: 20080815
  Transmission Date: 20201104
  Serious: Yes (Other)
  Sender: FDA-Public Use
  Company Number: HQWYE899329AUG07

PATIENT
  Age: 48 Year
  Sex: Male
  Weight: 72.19 kg

DRUGS (9)
  1. IRON [Concomitant]
     Active Substance: IRON
     Indication: ANAEMIA PROPHYLAXIS
     Route: 065
     Dates: start: 20070207, end: 20070915
  2. NESBUVIR [Suspect]
     Active Substance: NESBUVIR
     Indication: HEPATITIS C
     Route: 048
     Dates: start: 20061227, end: 20070810
  3. EFFEXOR [Concomitant]
     Active Substance: VENLAFAXINE HYDROCHLORIDE
     Indication: DEPRESSION
     Dosage: UNKNOWN
     Route: 065
     Dates: start: 20070207, end: 20070915
  4. RIBOFLAVIN [Concomitant]
     Active Substance: RIBOFLAVIN
     Indication: ANAEMIA PROPHYLAXIS
     Route: 030
     Dates: start: 20070207, end: 20070915
  5. PEGINTERFERON ALFA?2B [Suspect]
     Active Substance: PEGINTERFERON ALFA-2B
     Indication: HEPATITIS C
     Route: 058
     Dates: start: 20061227, end: 20070828
  6. REBETOL [Suspect]
     Active Substance: RIBAVIRIN
     Indication: HEPATITIS C
     Route: 048
     Dates: start: 20061227, end: 20070828
  7. VITAMIN B [Concomitant]
     Active Substance: VITAMIN B
     Indication: ANAEMIA PROPHYLAXIS
     Dosage: UNKNOWN
     Route: 065
     Dates: start: 20070207, end: 20070915
  8. ACETAMINOPHEN. [Concomitant]
     Active Substance: ACETAMINOPHEN
     Indication: ARTHRALGIA
     Dosage: UNKNOWN
     Route: 065
     Dates: start: 20070207, end: 20070915
  9. METRONIDAZOLE. [Concomitant]
     Active Substance: METRONIDAZOLE

REACTIONS (1)
  - Hepatic enzyme increased [Recovered/Resolved]

NARRATIVE: CASE EVENT DATE: 20070828
